FAERS Safety Report 21510567 (Version 1)
Quarter: 2022Q4

REPORT INFORMATION
  Report Type: Spontaneous
  Country: FR (occurrence: FR)
  Receive Date: 20221026
  Receipt Date: 20221026
  Transmission Date: 20230112
  Serious: Yes (Hospitalization, Other)
  Sender: FDA-Public Use
  Company Number: FR-VER-202200079

PATIENT
  Age: 76 Year
  Sex: Male

DRUGS (2)
  1. TRIPTORELIN [Suspect]
     Active Substance: TRIPTORELIN
     Indication: Prostate cancer
     Dosage: DRUG START DATE: 20-SEP-2021
     Route: 030
  2. SPIKEVAX [Suspect]
     Active Substance: ELASOMERAN
     Indication: COVID-19 immunisation
     Dosage: INJECTABLE DISPERSION MRNA (NUCLEOSIDE ?MODIFIED) VACCINE AGAINST COVID-19?DRUG START DATE: 21-APR-2
     Route: 030

REACTIONS (5)
  - Allodynia [Recovering/Resolving]
  - Arthralgia [Recovering/Resolving]
  - Intestinal obstruction [Recovering/Resolving]
  - Myalgia [Recovering/Resolving]
  - Retinal vein thrombosis [Recovering/Resolving]

NARRATIVE: CASE EVENT DATE: 20211120
